FAERS Safety Report 7232924-4 (Version None)
Quarter: 2011Q1

REPORT INFORMATION
  Report Type: 
  Country: None (occurrence: None)
  Receive Date: 20110119
  Receipt Date: 20110111
  Transmission Date: 20110831
  Serious: Yes (Other)
  Sender: FDA-Public Use
  Company Number: PHHY2010US88118

PATIENT
  Sex: Male
  Weight: 60 kg

DRUGS (28)
  1. EXJADE [Suspect]
     Dosage: 500 MG, BID
     Route: 048
     Dates: start: 20100928
  2. IMODIUM [Concomitant]
     Dosage: UNK
     Route: 048
  3. DELTASONE [Concomitant]
     Dosage: 20 MG, BID
  4. ZOCOR [Concomitant]
     Dosage: 80 MG, DAILY
     Route: 048
  5. NORVASC [Concomitant]
     Dosage: 10 MG, DAILY
     Route: 048
  6. PRILOSEC [Concomitant]
     Dosage: 40 MG, DAILY
     Route: 048
  7. ZOFRAN [Concomitant]
     Dosage: 8 MG, DAILY
     Route: 048
     Dates: start: 20060705
  8. FERROUS SULFATE [Concomitant]
     Dosage: 325 MG, DAILY
     Route: 048
  9. SYNTHROID [Concomitant]
     Dosage: 50 UG, DAILY
     Route: 048
  10. SURFAK [Concomitant]
     Dosage: 250 MG, PRN
     Route: 048
  11. EXJADE [Suspect]
     Indication: MYELODYSPLASTIC SYNDROME
     Dosage: 500 MG, BID
     Route: 048
     Dates: start: 20080528
  12. EXJADE [Suspect]
     Indication: IRON OVERLOAD
     Dosage: 500 MG, BID
     Route: 048
     Dates: start: 20090420
  13. EXJADE [Suspect]
     Dosage: 1000 MG QD
     Route: 048
     Dates: start: 20100325, end: 20101201
  14. LEVAQUIN [Concomitant]
     Dosage: 500 MG, DAILY
     Route: 048
  15. THALOMID [Concomitant]
     Dosage: 50 MG, DAILY
     Route: 048
  16. HYDREA [Concomitant]
     Dosage: 500 MG, DAILY
  17. THALOMID [Concomitant]
     Dosage: 100 MG, DAILY
     Route: 048
  18. FLAGYL [Concomitant]
     Dosage: 500 MG, Q8H
  19. CIPRO [Concomitant]
     Dosage: 500 MG, BID
  20. FERGON [Concomitant]
     Dosage: 325 MG, DAILY
     Route: 048
  21. DILANTIN [Concomitant]
     Dosage: 200 MG, DAILY BEFORE SLEEP
     Route: 048
  22. ENABLEX [Concomitant]
     Dosage: 15 MG, DAILY
     Route: 048
  23. PROTONIX [Concomitant]
     Dosage: 40 MG, DAILY
     Route: 048
  24. TYLENOL [Concomitant]
     Dosage: 1000 MG, Q6H
     Route: 048
  25. GLUCOSAMINE [Concomitant]
     Route: 048
  26. HERBAL PREPARATION [Concomitant]
  27. FLOMAX [Concomitant]
     Dosage: 0.4 MG, DAILY
     Route: 048
  28. ZYLOPRIM [Concomitant]
     Dosage: 100 MG, DAILY

REACTIONS (6)
  - NEOPLASM MALIGNANT [None]
  - RENAL DISORDER [None]
  - CARDIAC FAILURE CONGESTIVE [None]
  - BLOOD CREATININE INCREASED [None]
  - CARDIOMYOPATHY [None]
  - ACUTE MYELOID LEUKAEMIA [None]
